FAERS Safety Report 8913725 (Version 1)
Quarter: 2012Q4

REPORT INFORMATION
  Report Type: 
  Country: US (occurrence: US)
  Receive Date: 20121116
  Receipt Date: 20121116
  Transmission Date: 20130627
  Serious: No
  Sender: FDA-Public Use
  Company Number: US-BIOGENIDEC-2012BI053277

PATIENT
  Age: 51 Year
  Sex: Female

DRUGS (1)
  1. TYSABRI [Suspect]
     Indication: MULTIPLE SCLEROSIS
     Route: 042
     Dates: start: 20120113

REACTIONS (8)
  - Red blood cell count decreased [Not Recovered/Not Resolved]
  - Mean cell volume decreased [Recovered/Resolved]
  - Mean cell haemoglobin increased [Not Recovered/Not Resolved]
  - Mean cell haemoglobin concentration increased [Unknown]
  - Mean cell volume increased [Not Recovered/Not Resolved]
  - Lymphocyte morphology abnormal [Not Recovered/Not Resolved]
  - Punctate basophilia [Not Recovered/Not Resolved]
  - Macrocytosis [Not Recovered/Not Resolved]
